FAERS Safety Report 16759153 (Version 1)
Quarter: 2019Q4

REPORT INFORMATION
  Report Type: Spontaneous
  Country: US (occurrence: US)
  Receive Date: 20190829
  Receipt Date: 20190829
  Transmission Date: 20200122
  Serious: Yes (Disabling, Other)
  Sender: FDA-Public Use
  Company Number: None

PATIENT
  Age: 42 Year
  Sex: Female
  Weight: 45.45 kg

DRUGS (7)
  1. ALBUTEROL. [Concomitant]
     Active Substance: ALBUTEROL
  2. VITAMIN D [Concomitant]
     Active Substance: VITAMIN D NOS
  3. OXYCODONE [Suspect]
     Active Substance: OXYCODONE
  4. MULTI VITAMIN [Concomitant]
     Active Substance: VITAMINS
  5. ADDERALL [Concomitant]
     Active Substance: AMPHETAMINE ASPARTATE\AMPHETAMINE SULFATE\DEXTROAMPHETAMINE SACCHARATE\DEXTROAMPHETAMINE SULFATE
  6. TUMERIC [Concomitant]
     Active Substance: HERBALS\TURMERIC
  7. TOPAMAX [Concomitant]
     Active Substance: TOPIRAMATE

REACTIONS (2)
  - Therapy cessation [None]
  - Pain [None]

NARRATIVE: CASE EVENT DATE: 20190701
